FAERS Safety Report 13381498 (Version 1)
Quarter: 2017Q1

REPORT INFORMATION
  Report Type: Spontaneous
  Country: US (occurrence: US)
  Receive Date: 20170328
  Receipt Date: 20170328
  Transmission Date: 20170429
  Serious: Yes (Death)
  Sender: FDA-Public Use
  Company Number: None

PATIENT
  Age: 70 Year
  Sex: Male

DRUGS (12)
  1. PROPAFENONE. [Concomitant]
     Active Substance: PROPAFENONE
  2. DIGOXIN. [Concomitant]
     Active Substance: DIGOXIN
  3. GABAPENTIN. [Concomitant]
     Active Substance: GABAPENTIN
  4. HYDROCO/APAP [Concomitant]
     Active Substance: ACETAMINOPHEN\HYDROCODONE
  5. TRAZODONE [Concomitant]
     Active Substance: TRAZODONE HYDROCHLORIDE
  6. CENTRUM [Concomitant]
     Active Substance: VITAMINS
  7. CARB/LEVO ER [Concomitant]
  8. AZILECT [Concomitant]
     Active Substance: RASAGILINE MESYLATE
  9. BUPROPN HCL [Concomitant]
     Active Substance: BUPROPION HYDROCHLORIDE
  10. ELIQUIS [Concomitant]
     Active Substance: APIXABAN
  11. NUPLAZID [Suspect]
     Active Substance: PIMAVANSERIN TARTRATE
     Indication: PARKINSON^S DISEASE
     Route: 048
     Dates: start: 201612, end: 20170325
  12. TRAMADOL HCL [Concomitant]
     Active Substance: TRAMADOL HYDROCHLORIDE

REACTIONS (2)
  - Hallucination [None]
  - Respiratory rate decreased [None]

NARRATIVE: CASE EVENT DATE: 20170325
